FAERS Safety Report 24142770 (Version 1)
Quarter: 2024Q3

REPORT INFORMATION
  Report Type: Report from Study
  Country: GB (occurrence: GB)
  Receive Date: 20240726
  Receipt Date: 20240726
  Transmission Date: 20241017
  Serious: Yes (Hospitalization)
  Sender: SAMSUNG BIOEPIS
  Company Number: GB-SAMSUNG BIOEPIS-SB-2024-21981

PATIENT
  Age: 68 Year
  Sex: Female

DRUGS (1)
  1. ETANERCEPT [Suspect]
     Active Substance: ETANERCEPT
     Indication: Rheumatoid arthritis
     Route: 058

REACTIONS (4)
  - Dyspnoea [Recovered/Resolved]
  - COVID-19 [Recovered/Resolved]
  - Clostridium difficile infection [Recovered/Resolved]
  - Escherichia infection [Recovered/Resolved]
